FAERS Safety Report 8826073 (Version 1)
Quarter: 2012Q4

REPORT INFORMATION
  Report Type: 
  Country: NZ (occurrence: NZ)
  Receive Date: 20121005
  Receipt Date: 20121005
  Transmission Date: 20130627
  Serious: Yes (Other)
  Sender: FDA-Public Use
  Company Number: PHHY2012NZ078406

PATIENT
  Age: 71 Year
  Sex: Male

DRUGS (1)
  1. CLOZARIL [Suspect]
     Indication: SCHIZOPHRENIA
     Dosage: 100 mg mane, 300 mg nocte
     Route: 048
     Dates: start: 20120401, end: 20120629

REACTIONS (3)
  - Encephalopathy [Unknown]
  - Electroencephalogram abnormal [Recovered/Resolved]
  - Delirium [Recovered/Resolved]
